FAERS Safety Report 8303510-X (Version None)
Quarter: 2012Q2

REPORT INFORMATION
  Report Type: 
  Country: None (occurrence: None)
  Receive Date: 20120419
  Receipt Date: 20111213
  Transmission Date: 20120825
  Serious: Yes (Other)
  Sender: FDA-Public Use
  Company Number: AEDEU201100341

PATIENT
  Age: 56 Year
  Sex: Female

DRUGS (5)
  1. PROLASTIN [Suspect]
     Indication: ALPHA-1 ANTI-TRYPSIN DEFICIENCY
     Dosage: 4000 MG;IV
     Route: 042
  2. BERODUAL [Concomitant]
  3. FLUTICASONE PROPIONATE/SALMETEROL [Concomitant]
  4. CALCIMAGON /00751501/ [Concomitant]
  5. PREDNISONE TAB [Concomitant]

REACTIONS (2)
  - DERMATITIS ALLERGIC [None]
  - URTICARIA [None]
